FAERS Safety Report 4515589-1 (Version None)
Quarter: 2004Q4

REPORT INFORMATION
  Report Type: 
  Country: None (occurrence: None)
  Receive Date: 20041126
  Receipt Date: 20041115
  Transmission Date: 20050328
  Serious: Yes (Other)
  Sender: FDA-Public Use
  Company Number: 2004093607

PATIENT
  Age: 27 Year
  Sex: Male

DRUGS (4)
  1. HYDROCORTISONE SODIUM SUCCINATE [Suspect]
     Indication: URTICARIA
     Dosage: INTRAVENOUS
     Route: 042
     Dates: start: 20041114, end: 20041101
  2. HYDROXYZINE HCL [Concomitant]
  3. BUFFERIN [Concomitant]
  4. SODIUM CHLORIDE 0.9% [Concomitant]

REACTIONS (1)
  - SHOCK [None]
